FAERS Safety Report 13393733 (Version 1)
Quarter: 2017Q1

REPORT INFORMATION
  Report Type: Report from Study
  Country: CA (occurrence: CA)
  Receive Date: 20170331
  Receipt Date: 20170331
  Transmission Date: 20170429
  Serious: Yes (Hospitalization, Other)
  Sender: FDA-Public Use
  Company Number: CA-PFIZER INC-CA-WYE-H09769709

PATIENT
  Sex: Male

DRUGS (1)
  1. VENLAFAXINE HCL [Suspect]
     Active Substance: VENLAFAXINE HYDROCHLORIDE
     Indication: ANTIDEPRESSANT THERAPY
     Dosage: 75 MG, 1X/DAY
     Route: 064

REACTIONS (12)
  - Irritability [Recovered/Resolved]
  - Tremor neonatal [Recovered/Resolved]
  - Selective eating disorder [Recovered/Resolved]
  - Agitation neonatal [Recovered/Resolved]
  - Maternal exposure during pregnancy [Recovered/Resolved]
  - Drug withdrawal syndrome neonatal [Recovered/Resolved]
  - Neonatal tachypnoea [Recovered/Resolved]
  - Neonatal disorder [Recovered/Resolved]
  - Infantile vomiting [Recovered/Resolved]
  - Hypertonia neonatal [Recovered/Resolved]
  - Muscle rigidity [Recovered/Resolved]
  - Diarrhoea neonatal [Recovered/Resolved]
